FAERS Safety Report 6844280-1 (Version None)
Quarter: 2010Q3

REPORT INFORMATION
  Report Type: 
  Country: None (occurrence: None)
  Receive Date: 20100715
  Receipt Date: 20100706
  Transmission Date: 20110219
  Serious: Yes (Hospitalization, Other)
  Sender: FDA-Public Use
  Company Number: US-PFIZER INC-2010073515

PATIENT
  Sex: Female
  Weight: 85.261 kg

DRUGS (2)
  1. GEODON [Suspect]
     Indication: HEPATIC FAILURE
     Dosage: 80, 2X/DAY
     Route: 048
  2. ALCOHOL [Suspect]
     Dosage: UNK

REACTIONS (1)
  - HEPATIC FAILURE [None]
